FAERS Safety Report 12083024 (Version 1)
Quarter: 2016Q1

REPORT INFORMATION
  Report Type: Spontaneous
  Country: US (occurrence: None)
  Receive Date: 20160216
  Receipt Date: 20160216
  Transmission Date: 20160526
  Serious: No
  Sender: FDA-Public Use
  Company Number: None

PATIENT
  Age: 58 Year
  Sex: Male

DRUGS (1)
  1. SUTENT [Suspect]
     Active Substance: SUNITINIB MALATE
     Dosage: 50MG DAILY FOR 28 DAYS THEN 14 PO
     Route: 048
     Dates: start: 20160113

REACTIONS (3)
  - Diarrhoea [None]
  - Gastrointestinal disorder [None]
  - Constipation [None]

NARRATIVE: CASE EVENT DATE: 20160211
